FAERS Safety Report 6788103-8 (Version None)
Quarter: 2010Q2

REPORT INFORMATION
  Report Type: 
  Country: None (occurrence: None)
  Receive Date: 20100623
  Receipt Date: 20080220
  Transmission Date: 20101027
  Serious: Yes (Other)
  Sender: FDA-Public Use
  Company Number: US-PFIZER INC-2008000151

PATIENT
  Sex: Female
  Weight: 81.6 kg

DRUGS (2)
  1. XALATAN [Suspect]
     Indication: GLAUCOMA
     Dosage: DAILY: EVERYDAY
     Dates: start: 20070601, end: 20071001
  2. METFORMIN HCL [Concomitant]
     Indication: DIABETES MELLITUS

REACTIONS (7)
  - EYE IRRITATION [None]
  - HALO VISION [None]
  - IMPAIRED DRIVING ABILITY [None]
  - KERATITIS [None]
  - OCULAR HYPERAEMIA [None]
  - PAIN [None]
  - VISION BLURRED [None]
